FAERS Safety Report 7939172-0 (Version None)
Quarter: 2011Q4

REPORT INFORMATION
  Report Type: 
  Country: None (occurrence: None)
  Receive Date: 20111124
  Receipt Date: 20111116
  Transmission Date: 20120403
  Serious: Yes (Hospitalization)
  Sender: FDA-Public Use
  Company Number: US-ROCHE-GNE319201

PATIENT
  Sex: Female

DRUGS (3)
  1. NEURONTIN [Concomitant]
     Indication: NERVE COMPRESSION
     Dosage: UNK
     Route: 048
  2. OMALIZUMAB [Suspect]
     Indication: ASTHMA
     Dosage: UNK
     Dates: start: 20090203, end: 20090801
  3. XANAX [Concomitant]
     Indication: ANXIETY
     Dosage: UNK
     Route: 048

REACTIONS (1)
  - POST PROCEDURAL HAEMORRHAGE [None]
